FAERS Safety Report 24608942 (Version 2)
Quarter: 2025Q1

REPORT INFORMATION
  Report Type: Spontaneous
  Country: FR (occurrence: FR)
  Receive Date: 20241112
  Receipt Date: 20250116
  Transmission Date: 20250409
  Serious: Yes (Other)
  Sender: TAKEDA
  Company Number: FR-JNJFOC-20241119087

PATIENT
  Age: 77 Year
  Sex: Female
  Weight: 58 kg

DRUGS (6)
  1. VELCADE [Suspect]
     Active Substance: BORTEZOMIB
     Indication: Plasma cell myeloma
  2. VELCADE [Suspect]
     Active Substance: BORTEZOMIB
  3. DEXAMETHASONE [Suspect]
     Active Substance: DEXAMETHASONE
     Indication: Plasma cell myeloma
  4. DEXAMETHASONE [Suspect]
     Active Substance: DEXAMETHASONE
  5. DARZALEX [Suspect]
     Active Substance: DARATUMUMAB
     Indication: Plasma cell myeloma
  6. DARZALEX [Suspect]
     Active Substance: DARATUMUMAB

REACTIONS (3)
  - Plasma cell myeloma [Unknown]
  - Intentional product use issue [Unknown]
  - Gastrointestinal disorder [Unknown]
